FAERS Safety Report 17829411 (Version 1)
Quarter: 2020Q2

REPORT INFORMATION
  Report Type: Report from Study
  Country: CO (occurrence: CO)
  Receive Date: 20200527
  Receipt Date: 20200527
  Transmission Date: 20200714
  Serious: Yes (Death, Hospitalization, Other)
  Sender: FDA-Public Use
  Company Number: CO-ELI_LILLY_AND_COMPANY-CO202005006784

PATIENT
  Age: 82 Year
  Sex: Female

DRUGS (2)
  1. TERIPARATIDE [Suspect]
     Active Substance: TERIPARATIDE
     Indication: OSTEOPOROSIS
     Dosage: 20 UG, DAILY
     Route: 058
     Dates: start: 20181103
  2. IRBESARTAN. [Concomitant]
     Active Substance: IRBESARTAN
     Indication: HYPERTENSION
     Dosage: UNK

REACTIONS (12)
  - Cardiac failure [Fatal]
  - Cystitis noninfective [Unknown]
  - Fall [Unknown]
  - Fractured sacrum [Unknown]
  - Pancreatitis [Unknown]
  - General physical health deterioration [Unknown]
  - Cardiac valve disease [Unknown]
  - Somnambulism [Unknown]
  - Hepatic failure [Unknown]
  - Renal failure [Unknown]
  - Cerebrovascular accident [Recovered/Resolved]
  - Femur fracture [Unknown]

NARRATIVE: CASE EVENT DATE: 201902
